FAERS Safety Report 7660073-X (Version None)
Quarter: 2011Q3

REPORT INFORMATION
  Report Type: 
  Country: None (occurrence: None)
  Receive Date: 20110805
  Receipt Date: 20110728
  Transmission Date: 20111222
  Serious: Yes (Life-Threatening, Hospitalization)
  Sender: FDA-Public Use
  Company Number: FR-VERTEX PHARMACEUTICALS INC.-AE-2011-000311

PATIENT
  Sex: Male
  Weight: 76 kg

DRUGS (5)
  1. TOCO [Concomitant]
     Indication: INSULIN RESISTANCE
     Dates: start: 20110131
  2. PEGASYS [Concomitant]
     Indication: HEPATITIS C
     Route: 065
     Dates: start: 20110407, end: 20110427
  3. VX-950 [Suspect]
     Indication: HEPATITIS C
     Route: 048
     Dates: start: 20110407, end: 20110427
  4. COPEGUS [Concomitant]
     Indication: HEPATITIS C
     Route: 048
     Dates: start: 20110407, end: 20110427
  5. ALDACTONE [Concomitant]
     Indication: PROPHYLAXIS
     Dates: start: 20090217

REACTIONS (3)
  - ESCHERICHIA SEPSIS [None]
  - ULCER HAEMORRHAGE [None]
  - ANAEMIA [None]
